FAERS Safety Report 19987578 (Version 2)
Quarter: 2021Q4

REPORT INFORMATION
  Report Type: Spontaneous
  Country: DE (occurrence: DE)
  Receive Date: 20211022
  Receipt Date: 20211203
  Transmission Date: 20220303
  Serious: Yes (Other)
  Sender: FDA-Public Use
  Company Number: DE-GLAXOSMITHKLINE-DE2021EME216798

PATIENT
  Age: 4 Year
  Sex: Female

DRUGS (1)
  1. FLUTICASONE PROPIONATE [Suspect]
     Active Substance: FLUTICASONE PROPIONATE
     Indication: Product used for unknown indication
     Dosage: UNK
     Route: 055

REACTIONS (8)
  - Respiratory distress [Unknown]
  - Seizure [Unknown]
  - General physical health deterioration [Unknown]
  - Cough [Unknown]
  - Wrong technique in device usage process [Unknown]
  - Poor quality product administered [Unknown]
  - Incorrect dose administered [Unknown]
  - Product complaint [Unknown]
